FAERS Safety Report 17469669 (Version 3)
Quarter: 2020Q4

REPORT INFORMATION
  Report Type: Spontaneous
  Country: US (occurrence: US)
  Receive Date: 20200227
  Receipt Date: 20201119
  Transmission Date: 20210113
  Serious: Yes (Other)
  Sender: FDA-Public Use
  Company Number: US-009507513-2002USA008563

PATIENT
  Age: 29 Year
  Sex: Female
  Weight: 74.83 kg

DRUGS (7)
  1. CARBAMAZEPINE. [Suspect]
     Active Substance: CARBAMAZEPINE
     Indication: SEIZURE
     Dosage: 400 MILLIGRAM
     Dates: start: 2020
  2. ATIVAN [Concomitant]
     Active Substance: LORAZEPAM
     Dosage: UNK
  3. FOLIC ACID. [Concomitant]
     Active Substance: FOLIC ACID
     Dosage: UNK
  4. LEXAPRO [Concomitant]
     Active Substance: ESCITALOPRAM OXALATE
     Dosage: UNK
  5. NEXPLANON [Suspect]
     Active Substance: ETONOGESTREL
     Indication: CONTRACEPTION
     Dosage: 1 ROD EVERY 3 YEARS
     Route: 059
     Dates: start: 20190306, end: 20200228
  6. SINGULAIR [Concomitant]
     Active Substance: MONTELUKAST SODIUM
     Dosage: UNK
     Route: 048
  7. VITAMIN D (UNSPECIFIED) [Concomitant]
     Active Substance: VITAMIN D NOS
     Dosage: UNK

REACTIONS (6)
  - Vaginal haemorrhage [Not Recovered/Not Resolved]
  - Abortion spontaneous [Unknown]
  - Pregnancy with implant contraceptive [Recovered/Resolved]
  - Labelled drug-drug interaction medication error [Unknown]
  - Unintended pregnancy [Recovered/Resolved]
  - Abdominal pain [Not Recovered/Not Resolved]

NARRATIVE: CASE EVENT DATE: 2020
